FAERS Safety Report 9978026 (Version 3)
Quarter: 2014Q1

REPORT INFORMATION
  Report Type: Spontaneous
  Country: IT (occurrence: IT)
  Receive Date: 20140306
  Receipt Date: 20140318
  Transmission Date: 20141002
  Serious: Yes (Hospitalization)
  Sender: FDA-Public Use
  Company Number: IT-ABBVIE-14P-083-1198659-00

PATIENT
  Age: 82 Year
  Sex: Male

DRUGS (2)
  1. VECLAM [Suspect]
     Indication: BRONCHITIS
     Route: 048
     Dates: start: 20140113, end: 20140123
  2. SIMVASTATINA DOC [Interacting]
     Indication: HYPERCHOLESTEROLAEMIA
     Route: 048

REACTIONS (2)
  - Drug interaction [Unknown]
  - Myopathy [Recovered/Resolved]
